FAERS Safety Report 7414846-9 (Version None)
Quarter: 2011Q2

REPORT INFORMATION
  Report Type: 
  Country: None (occurrence: None)
  Receive Date: 20110414
  Receipt Date: 20110411
  Transmission Date: 20111010
  Serious: Yes (Death)
  Sender: FDA-Public Use
  Company Number: TN-SANOFI-AVENTIS-2011SA022281

PATIENT
  Age: 75 Year
  Sex: Female

DRUGS (10)
  1. PLAVIX [Suspect]
     Route: 048
     Dates: start: 20051201, end: 20110306
  2. LASIX [Concomitant]
     Route: 048
     Dates: start: 20101201, end: 20110306
  3. CORVASAL [Concomitant]
     Route: 048
     Dates: end: 20110306
  4. INSULIN [Concomitant]
     Route: 058
     Dates: end: 20110306
  5. FENOFIBRATE [Concomitant]
     Route: 048
     Dates: end: 20110306
  6. ATACAND [Concomitant]
     Route: 048
     Dates: start: 20101201, end: 20110306
  7. PLAVIX [Suspect]
     Route: 048
     Dates: start: 20051201, end: 20110306
  8. ASPIRIN [Concomitant]
     Route: 048
     Dates: end: 20110306
  9. ATORVASTATIN [Concomitant]
     Route: 048
     Dates: start: 20101201, end: 20110306
  10. LOXEN [Concomitant]
     Route: 048
     Dates: start: 20101201, end: 20110306

REACTIONS (2)
  - RESPIRATORY FAILURE [None]
  - GENERAL PHYSICAL HEALTH DETERIORATION [None]
